FAERS Safety Report 17142596 (Version 2)
Quarter: 2020Q2

REPORT INFORMATION
  Report Type: Spontaneous
  Country: US (occurrence: US)
  Receive Date: 20191211
  Receipt Date: 20200424
  Transmission Date: 20200713
  Serious: No
  Sender: FDA-Public Use
  Company Number: US-PFIZER INC-2018096187

PATIENT
  Age: 82 Year
  Sex: Female

DRUGS (10)
  1. LYRICA [Suspect]
     Active Substance: PREGABALIN
     Indication: SLEEP DISORDER
     Dosage: 75 MG, AS NEEDED (ONCE A DAY AT BEDTIME IF NEEDED)
     Route: 048
  2. LYRICA [Suspect]
     Active Substance: PREGABALIN
     Indication: INSOMNIA
     Dosage: 100 MG, 1X/DAY (1 CAP DAILY AT BEDTIME/ TAKE 1 CAPSULE BY MOUTH NIGHTLY)
  3. LYRICA [Suspect]
     Active Substance: PREGABALIN
     Indication: SPINAL OSTEOARTHRITIS
     Dosage: 100 MG, 1X/DAY (1 CAP DAILY AT BEDTIME)
     Route: 048
     Dates: start: 20190109, end: 2019
  4. PREGABALIN. [Suspect]
     Active Substance: PREGABALIN
     Indication: INSOMNIA
     Dosage: 100 MG, 1X/DAY (TAKE 1 CAPSULE BY MOUTH NIGHTLY)
     Route: 048
  5. LYRICA [Suspect]
     Active Substance: PREGABALIN
     Dosage: 25 MG, AS NEEDED (AT BEDTIME IF NEEDED)
     Route: 048
     Dates: start: 20190306
  6. LYRICA [Suspect]
     Active Substance: PREGABALIN
     Dosage: 100 MG, 1X/DAY (1 CAP DAILY AT BEDTIME)
     Route: 048
     Dates: start: 20190306, end: 2019
  7. PREGABALIN. [Suspect]
     Active Substance: PREGABALIN
     Indication: SLEEP DISORDER
     Dosage: 75 MG, 1X/DAY
     Route: 048
  8. PREGABALIN. [Suspect]
     Active Substance: PREGABALIN
     Indication: SPINAL OSTEOARTHRITIS
  9. LYRICA [Suspect]
     Active Substance: PREGABALIN
     Dosage: 100 MG, 1X/DAY (TAKE 1 CAPSULE BY MOUTH NIGHTLY)
     Route: 048
     Dates: start: 20191203
  10. LYRICA [Suspect]
     Active Substance: PREGABALIN
     Dosage: 100 MG, 1X/DAY (TAKE 1 CAPSULE BY MOUTH NIGHTLY)
     Route: 048
     Dates: start: 20191004, end: 2019

REACTIONS (3)
  - Product use in unapproved indication [Unknown]
  - Drug effective for unapproved indication [Unknown]
  - Off label use [Unknown]
